FAERS Safety Report 11098012 (Version 2)
Quarter: 2015Q2

REPORT INFORMATION
  Report Type: Spontaneous
  Country: US (occurrence: US)
  Receive Date: 20150507
  Receipt Date: 20150514
  Transmission Date: 20150821
  Serious: Yes (Other)
  Sender: FDA-Public Use
  Company Number: US-PFIZER INC-2014289087

PATIENT
  Sex: Male

DRUGS (1)
  1. CAVERJECT [Suspect]
     Active Substance: ALPROSTADIL
     Dosage: UNK

REACTIONS (7)
  - Neoplasm malignant [Unknown]
  - Contusion [Unknown]
  - Headache [Unknown]
  - Anxiety [Unknown]
  - Abnormal behaviour [Unknown]
  - Self injurious behaviour [Unknown]
  - Haemorrhage [Unknown]
